FAERS Safety Report 14841290 (Version 2)
Quarter: 2018Q2

REPORT INFORMATION
  Report Type: Spontaneous
  Country: PL (occurrence: PL)
  Receive Date: 20180503
  Receipt Date: 20180525
  Transmission Date: 20180711
  Serious: Yes (Other)
  Sender: FDA-Public Use
  Company Number: PL-INCYTE CORPORATION-2018IN003872

PATIENT

DRUGS (1)
  1. JAKAVI [Suspect]
     Active Substance: RUXOLITINIB
     Indication: MYELOFIBROSIS
     Dosage: 15 MG, BID
     Route: 065
     Dates: start: 20170906, end: 20180228

REACTIONS (9)
  - Headache [Unknown]
  - Sinusitis [Unknown]
  - Cerebrovascular accident [Unknown]
  - Pain [Unknown]
  - Cerebral atrophy [Unknown]
  - Meningioma [Unknown]
  - Dizziness [Unknown]
  - Cerebrovascular disorder [Unknown]
  - Anaemia [Unknown]
